FAERS Safety Report 23786522 (Version 3)
Quarter: 2024Q2

REPORT INFORMATION
  Report Type: Report from Study
  Country: US (occurrence: US)
  Receive Date: 20240426
  Receipt Date: 20240626
  Transmission Date: 20240716
  Serious: Yes (Other)
  Sender: FDA-Public Use
  Company Number: US-TAKEDA-2024TUS039373

PATIENT
  Sex: Male

DRUGS (1)
  1. MARIBAVIR [Suspect]
     Active Substance: MARIBAVIR
     Indication: Cytomegalovirus infection
     Dosage: 400 MILLIGRAM, BID
     Route: 048

REACTIONS (6)
  - Leukopenia [Unknown]
  - Viral load increased [Unknown]
  - Malaise [Unknown]
  - Cytomegalovirus infection [Not Recovered/Not Resolved]
  - Dyspepsia [Unknown]
  - Abdominal pain [Unknown]
